FAERS Safety Report 7951922-6 (Version None)
Quarter: 2011Q4

REPORT INFORMATION
  Report Type: 
  Country: None (occurrence: None)
  Receive Date: 20111201
  Receipt Date: 20111118
  Transmission Date: 20120403
  Serious: Yes (Hospitalization)
  Sender: FDA-Public Use
  Company Number: FR-PFIZER INC-2011289846

PATIENT
  Age: 83 Year
  Sex: Male

DRUGS (3)
  1. LORAZEPAM [Concomitant]
     Dosage: 1 MG, 1X/DAY
     Route: 048
     Dates: start: 20110116, end: 20110123
  2. MORPHINE SULFATE [Suspect]
     Dosage: 30 MG, 1X/DAY
     Route: 048
     Dates: start: 20110116, end: 20110123
  3. IRBESARTAN [Concomitant]
     Dosage: 150 MG, 2X/DAY
     Route: 048

REACTIONS (3)
  - VOMITING [None]
  - CONFUSIONAL STATE [None]
  - FALL [None]
